FAERS Safety Report 8764956 (Version 1)
Quarter: 2012Q4

REPORT INFORMATION
  Report Type: 
  Country: FR (occurrence: FR)
  Receive Date: 20120903
  Receipt Date: 20120903
  Transmission Date: 20130627
  Serious: Yes (Hospitalization)
  Sender: FDA-Public Use
  Company Number: FR-BRISTOL-MYERS SQUIBB COMPANY-16892275

PATIENT
  Age: 64 Year
  Sex: Male

DRUGS (7)
  1. APROVEL TABS 75 MG [Suspect]
     Indication: ACUTE CORONARY SYNDROME
     Route: 048
     Dates: start: 20120406, end: 20120614
  2. LASILIX [Suspect]
     Route: 048
     Dates: start: 201108, end: 20120614
  3. AVLOCARDYL [Suspect]
     Dosage: caps
     Route: 048
     Dates: start: 201105, end: 20120614
  4. TAHOR [Suspect]
     Dosage: tabs
     Route: 048
     Dates: start: 201105, end: 20120614
  5. LANTUS [Concomitant]
     Route: 058
  6. NOVORAPID [Concomitant]
  7. PLAVIX [Concomitant]

REACTIONS (5)
  - Rhabdomyolysis [Recovered/Resolved]
  - Renal failure acute [Recovered/Resolved]
  - Bradycardia [None]
  - Hypotension [None]
  - Jaundice [None]
